FAERS Safety Report 10454425 (Version 3)
Quarter: 2014Q3

REPORT INFORMATION
  Report Type: Report from Study
  Country: US (occurrence: US)
  Receive Date: 20140915
  Receipt Date: 20140922
  Transmission Date: 20150326
  Serious: Yes (Hospitalization)
  Sender: FDA-Public Use
  Company Number: US-009507513-1409USA000169

PATIENT
  Age: 13 Year
  Sex: Female
  Weight: 58.2 kg

DRUGS (24)
  1. POSACONAZOLE [Suspect]
     Active Substance: POSACONAZOLE
     Indication: ANTIFUNGAL PROPHYLAXIS
     Dosage: 331.2 MG, TID
     Route: 048
     Dates: start: 20140731, end: 20140812
  2. BACTRIM [Suspect]
     Active Substance: SULFAMETHOXAZOLE\TRIMETHOPRIM
     Indication: ANTIBIOTIC PROPHYLAXIS
     Dosage: 1.5 TABS, BID, SUNDAY AND MONDAY
     Route: 048
     Dates: start: 20111102
  3. ACETAMINOPHEN. [Concomitant]
     Active Substance: ACETAMINOPHEN
     Indication: PYREXIA
     Dosage: UNK
     Dates: start: 20140819, end: 20140819
  4. HEXADROL [Suspect]
     Active Substance: DEXAMETHASONE
     Indication: PROPHYLAXIS
     Dosage: 3 TABS, BID, LAST DOSE ON SATURDAY AM
     Route: 048
     Dates: start: 20140818, end: 20140823
  5. CALCIUM CHLORIDE. [Concomitant]
     Active Substance: CALCIUM CHLORIDE
     Indication: PROPHYLAXIS
     Dosage: UNK
     Dates: start: 20140819, end: 20140819
  6. RANITIDINE [Concomitant]
     Active Substance: RANITIDINE\RANITIDINE HYDROCHLORIDE
     Indication: PROPHYLAXIS
     Dosage: UNK
     Dates: start: 20140818
  7. ZOFRAN [Suspect]
     Active Substance: ONDANSETRON HYDROCHLORIDE
     Indication: PROPHYLAXIS OF NAUSEA AND VOMITING
     Dosage: 1 TAB, Q4H AS NEEDED
     Route: 048
     Dates: start: 20111031
  8. ZOFRAN [Suspect]
     Active Substance: ONDANSETRON HYDROCHLORIDE
     Dosage: 1 TAB, Q4H
     Route: 048
     Dates: start: 20140818
  9. CEFEPIME [Concomitant]
     Active Substance: CEFEPIME\CEFEPIME HYDROCHLORIDE
     Indication: INFECTION PROPHYLAXIS
     Dosage: UNK
     Dates: start: 20140819
  10. SODIUM BICARBONATE. [Concomitant]
     Active Substance: SODIUM BICARBONATE
     Indication: ELECTROLYTE SUBSTITUTION THERAPY
     Dosage: UNK
     Dates: start: 20140819, end: 20140819
  11. VFEND [Suspect]
     Active Substance: VORICONAZOLE
     Indication: ANTIFUNGAL PROPHYLAXIS
     Dosage: 1 TAB, BID
     Route: 048
     Dates: start: 20140818
  12. VALTREX [Suspect]
     Active Substance: VALACYCLOVIR HYDROCHLORIDE
     Dosage: 1 TAB, BID
     Route: 048
     Dates: start: 20140709
  13. HEPARIN [Concomitant]
     Active Substance: HEPARIN SODIUM
     Dosage: 4 ML DAILY, PRN, 10 UNIT/ML INTRAVENOUS SOLUTION
     Route: 042
     Dates: start: 20140819, end: 20140819
  14. METHOTREXATE [Concomitant]
     Active Substance: METHOTREXATE
     Indication: CHEMOTHERAPY
     Dosage: UNK
     Dates: start: 20140818, end: 20140818
  15. VFEND [Suspect]
     Active Substance: VORICONAZOLE
     Dosage: 1 TAB, BID
     Route: 048
     Dates: start: 20140813
  16. HEPARIN [Concomitant]
     Active Substance: HEPARIN SODIUM
     Indication: CATHETER MANAGEMENT
     Dosage: 4 ML DAILY, PRN, 10 UNIT/ML INTRAVENOUS SOLUTION
     Route: 042
     Dates: start: 20111116
  17. NEURONTIN [Suspect]
     Active Substance: GABAPENTIN
     Indication: PAIN PROPHYLAXIS
     Dosage: 1 CAP, TID
     Route: 048
     Dates: start: 20140609
  18. ALTEPLASE [Concomitant]
     Active Substance: ALTEPLASE
     Indication: CATHETER MANAGEMENT
     Dosage: UNK
     Dates: start: 20140809, end: 20140813
  19. ALBUMIN HUMAN [Concomitant]
     Active Substance: ALBUMIN (HUMAN)
     Indication: HYPOTENSION
     Dosage: UNK
     Dates: start: 20140819, end: 20140819
  20. LORAZEPAM. [Concomitant]
     Active Substance: LORAZEPAM
     Indication: ANTIEMETIC SUPPORTIVE CARE
     Dosage: UNK
     Dates: start: 20140818, end: 20140819
  21. VALTREX [Suspect]
     Active Substance: VALACYCLOVIR HYDROCHLORIDE
     Indication: PROPHYLAXIS
     Dosage: 1 TAB, BID
     Route: 048
     Dates: start: 20140818
  22. FILGRASTIM [Concomitant]
     Active Substance: FILGRASTIM
     Indication: PROPHYLAXIS
     Dosage: UNK
     Dates: start: 20140812, end: 20140812
  23. CYTARABINE. [Concomitant]
     Active Substance: CYTARABINE
     Indication: CHEMOTHERAPY
     Dosage: UNK
     Dates: start: 20140818, end: 20140819
  24. DEXAMETHASONE. [Concomitant]
     Active Substance: DEXAMETHASONE
     Indication: PROPHYLAXIS
     Dosage: UNK
     Route: 047
     Dates: start: 20140818

REACTIONS (6)
  - Neutropenia [Not Recovered/Not Resolved]
  - Pyrexia [Not Recovered/Not Resolved]
  - Headache [Recovered/Resolved]
  - Bradycardia [Recovered/Resolved]
  - Epistaxis [Recovered/Resolved]
  - Hypothermia [Recovered/Resolved]

NARRATIVE: CASE EVENT DATE: 20140823
